FAERS Safety Report 6814351-4 (Version None)
Quarter: 2010Q3

REPORT INFORMATION
  Report Type: 
  Country: None (occurrence: None)
  Receive Date: 20100702
  Receipt Date: 20100621
  Transmission Date: 20110219
  Serious: Yes (Other)
  Sender: FDA-Public Use
  Company Number: US-JNJFOC-20100606686

PATIENT
  Sex: Female
  Weight: 53.07 kg

DRUGS (3)
  1. REMICADE [Suspect]
     Indication: COLITIS ULCERATIVE
     Dosage: 2 DOSES
     Route: 042
  2. PREDNISONE [Concomitant]
  3. ORAL CONTRACEPTIVE [Concomitant]

REACTIONS (3)
  - ACNE CYSTIC [None]
  - RASH PUSTULAR [None]
  - URTICARIA [None]
